FAERS Safety Report 14242651 (Version 3)
Quarter: 2017Q4

REPORT INFORMATION
  Report Type: Report from Study
  Country: CN (occurrence: CN)
  Receive Date: 20171201
  Receipt Date: 20171219
  Transmission Date: 20180321
  Serious: Yes (Death, Other)
  Sender: FDA-Public Use
  Company Number: PHHY2017CN177145

PATIENT
  Age: 72 Year
  Sex: Male

DRUGS (2)
  1. TASIGNA [Suspect]
     Active Substance: NILOTINIB
     Indication: CHRONIC MYELOID LEUKAEMIA
     Dosage: 800 MG, QD (LAST DOSE TAKEN ON 20 NOV 2017)
     Route: 048
     Dates: start: 20100416, end: 20171120
  2. GLIVEC [Suspect]
     Active Substance: IMATINIB MESYLATE
     Indication: CHRONIC MYELOID LEUKAEMIA
     Dosage: 400 MG, QD
     Route: 065
     Dates: start: 2009, end: 201405

REACTIONS (5)
  - Therapeutic response decreased [Unknown]
  - Cerebral infarction [Unknown]
  - Vomiting [Unknown]
  - Hemiplegia [Unknown]
  - Death [Fatal]

NARRATIVE: CASE EVENT DATE: 201405
